FAERS Safety Report 7995651-1 (Version None)
Quarter: 2011Q4

REPORT INFORMATION
  Report Type: 
  Country: None (occurrence: None)
  Receive Date: 20111220
  Receipt Date: 20110328
  Transmission Date: 20120403
  Serious: Yes (Hospitalization)
  Sender: FDA-Public Use
  Company Number: US-MYLANLABS-2011S1006439

PATIENT
  Age: 39 Year
  Sex: Female
  Weight: 74.84 kg

DRUGS (4)
  1. JANUMET [Concomitant]
     Indication: TYPE 2 DIABETES MELLITUS
  2. SOTRADECOL [Suspect]
     Dosage: DILUTED WITH SODIUM CHLORIDE 09% AND FOAMED WITH 1CC OF 1.5% SOTRADECOL TO 4CC OF AIR.
     Route: 042
     Dates: start: 20110222
  3. INSULIN [Concomitant]
     Indication: TYPE 2 DIABETES MELLITUS
  4. METFORMIN HCL [Concomitant]
     Indication: TYPE 2 DIABETES MELLITUS

REACTIONS (1)
  - ANAPHYLACTOID REACTION [None]
